FAERS Safety Report 7149308-X (Version None)
Quarter: 2010Q4

REPORT INFORMATION
  Report Type: 
  Country: None (occurrence: None)
  Receive Date: 20101209
  Receipt Date: 20101130
  Transmission Date: 20110411
  Serious: Yes (Hospitalization)
  Sender: FDA-Public Use
  Company Number: IT-BAYER-2010-001434

PATIENT
  Sex: Female

DRUGS (1)
  1. CIPROXIN E.V. 1 SACC [Suspect]
     Indication: GASTROENTERITIS
     Dosage: 400 MG, BID
     Route: 042
     Dates: start: 20101028, end: 20101102

REACTIONS (1)
  - HYPOGLYCAEMIA [None]
